FAERS Safety Report 8043723 (Version 2)
Quarter: 2013Q1

REPORT INFORMATION
  Report Type: Spontaneous
  Country: US (occurrence: US)
  Receive Date: 20110719
  Receipt Date: 20130114
  Transmission Date: 20140127
  Serious: Yes (Death, Hospitalization)
  Sender: FDA-Public Use
  Company Number: US-GLAXOSMITHKLINE-A0909729A

PATIENT
  Age: 45 Year
  Sex: Male
  Weight: 155 kg

DRUGS (1)
  1. AVANDIA [Suspect]
     Indication: TYPE 2 DIABETES MELLITUS
     Route: 048

REACTIONS (12)
  - Hypoxic-ischaemic encephalopathy [Fatal]
  - Cardiac arrest [Fatal]
  - Visual impairment [Unknown]
  - Decreased appetite [Unknown]
  - Weight increased [Unknown]
  - Dyspnoea [Unknown]
  - Local swelling [Unknown]
  - Fatigue [Unknown]
  - Vomiting [Unknown]
  - Balance disorder [Unknown]
  - Joint swelling [Unknown]
  - Cardiovascular disorder [Unknown]
